FAERS Safety Report 24284598 (Version 1)
Quarter: 2024Q3

REPORT INFORMATION
  Report Type: Spontaneous
  Country: JP (occurrence: None)
  Receive Date: 20240905
  Receipt Date: 20240905
  Transmission Date: 20241017
  Serious: Yes (Other)
  Sender: ASTRAZENECA
  Company Number: 2024A198892

PATIENT
  Age: 70 Year
  Sex: Female

DRUGS (2)
  1. CRESTOR [Suspect]
     Active Substance: ROSUVASTATIN CALCIUM
     Dosage: DOSE UNKNOWN
     Route: 048
  2. CARBIMAZOLE [Concomitant]
     Active Substance: CARBIMAZOLE
     Indication: Graves^ disease
     Dosage: DOSE UNKNOWN

REACTIONS (10)
  - Arrhythmia [Unknown]
  - Constipation [Unknown]
  - Visceroptosis [Unknown]
  - Irritable bowel syndrome [Unknown]
  - Hypoaesthesia [Unknown]
  - Arthralgia [Unknown]
  - Abdominal pain [Unknown]
  - Diarrhoea [Unknown]
  - Angina pectoris [Unknown]
  - Vasodilatation [Unknown]

NARRATIVE: CASE EVENT DATE: 20230901
